FAERS Safety Report 25415969 (Version 2)
Quarter: 2025Q2

REPORT INFORMATION
  Report Type: Spontaneous
  Country: US (occurrence: US)
  Receive Date: 20250610
  Receipt Date: 20250617
  Transmission Date: 20250716
  Serious: Yes (Other)
  Sender: ABBVIE
  Company Number: US-ABBVIE-6314126

PATIENT
  Age: 60 Year
  Sex: Female
  Weight: 73.481 kg

DRUGS (2)
  1. SKYRIZI [Suspect]
     Active Substance: RISANKIZUMAB-RZAA
     Indication: Crohn^s disease
     Route: 058
     Dates: start: 202406
  2. SKYRIZI [Suspect]
     Active Substance: RISANKIZUMAB-RZAA
     Route: 058

REACTIONS (4)
  - Volvulus of small bowel [Recovering/Resolving]
  - Post procedural infection [Recovering/Resolving]
  - Unevaluable event [Recovered/Resolved]
  - Ileostomy [Recovering/Resolving]

NARRATIVE: CASE EVENT DATE: 20230101
